FAERS Safety Report 9735761 (Version 1)
Quarter: 2013Q4

REPORT INFORMATION
  Report Type: Spontaneous
  Country: US (occurrence: US)
  Receive Date: 20131206
  Receipt Date: 20131206
  Transmission Date: 20140711
  Serious: No
  Sender: FDA-Public Use
  Company Number: US-GILEAD-2009-0023006

PATIENT
  Sex: Male
  Weight: 95.25 kg

DRUGS (9)
  1. LETAIRIS [Suspect]
     Indication: PULMONARY ARTERIAL HYPERTENSION
     Route: 048
     Dates: start: 20090615
  2. WARFARIN [Concomitant]
  3. FUROSEMIDE [Concomitant]
  4. BENICAR [Concomitant]
  5. NORVASC [Concomitant]
  6. SOTALOL [Concomitant]
  7. DOXAZOSIN [Concomitant]
  8. LIPITOR [Concomitant]
  9. ISOSORBIDE [Concomitant]

REACTIONS (5)
  - Swelling [Unknown]
  - Abdominal distension [Unknown]
  - Dyspnoea [Unknown]
  - Swelling face [Unknown]
  - Oedema peripheral [Unknown]
